FAERS Safety Report 6970370-9 (Version None)
Quarter: 2010Q3

REPORT INFORMATION
  Report Type: 
  Country: None (occurrence: None)
  Receive Date: 20100908
  Receipt Date: 20100602
  Transmission Date: 20110219
  Serious: Yes (Hospitalization)
  Sender: FDA-Public Use
  Company Number: FR-BAXTER-2010BH009352

PATIENT
  Age: 59 Year
  Sex: Female
  Weight: 40 kg

DRUGS (22)
  1. FEIBA [Suspect]
     Indication: ACQUIRED HAEMOPHILIA
     Route: 042
     Dates: start: 20091016, end: 20091019
  2. FEIBA [Suspect]
     Indication: FACTOR VIII INHIBITION
     Route: 042
     Dates: start: 20091016, end: 20091019
  3. CORTANCYL [Concomitant]
     Dates: start: 20091015, end: 20091107
  4. ESOMEPRAZOLE MAGNESIUM [Concomitant]
     Dates: start: 20091015
  5. NOVORAPID [Concomitant]
     Indication: DIABETES MELLITUS
     Dates: start: 20091018, end: 20091125
  6. CACIT D3 [Concomitant]
     Dates: start: 20091015, end: 20091213
  7. STEROGYL [Concomitant]
     Dates: start: 20091015, end: 20100303
  8. SPECIAFOLDINE [Concomitant]
     Indication: ANAEMIA
     Dates: start: 20091015, end: 20091118
  9. SODIUM CHLORIDE [Concomitant]
     Indication: HYPONATRAEMIA
     Dates: start: 20091020, end: 20091107
  10. ACTONEL [Concomitant]
     Dates: start: 20091029, end: 20091112
  11. LANTUS [Concomitant]
     Indication: DIABETES MELLITUS
     Dates: start: 20091029, end: 20091113
  12. FORLAX [Concomitant]
     Dates: start: 20090101, end: 20091017
  13. RED BLOOD CELLS [Concomitant]
     Dates: start: 20091017, end: 20091102
  14. LASIX [Concomitant]
     Dates: start: 20091102, end: 20091102
  15. MABTHERA [Concomitant]
     Indication: HAEMOPHILIA
     Dates: start: 20091104, end: 20091118
  16. PERFALGAN [Concomitant]
     Indication: HYPERSENSITIVITY
     Dates: start: 20091104, end: 20091118
  17. POLARAMINE [Concomitant]
     Indication: HYPERSENSITIVITY
     Dates: start: 20091104, end: 20091118
  18. DIAMICRON [Concomitant]
     Dates: start: 20091117
  19. KOREC [Concomitant]
     Indication: HYPERTENSION
  20. MOPRAL [Concomitant]
     Dates: start: 20091214, end: 20100222
  21. EFFERALGAN [Concomitant]
     Indication: TOOTH ABSCESS
     Dates: start: 20100222, end: 20100222
  22. AMOXICILLIN TRIHYDRATE [Concomitant]
     Indication: TOOTH ABSCESS
     Dates: start: 20100225, end: 20100304

REACTIONS (2)
  - OEDEMA PERIPHERAL [None]
  - WEIGHT INCREASED [None]
